FAERS Safety Report 9701514 (Version 2)
Quarter: 2013Q4

REPORT INFORMATION
  Report Type: Spontaneous
  Country: CN (occurrence: CN)
  Receive Date: 20131121
  Receipt Date: 20131230
  Transmission Date: 20140711
  Serious: Yes (Other)
  Sender: FDA-Public Use
  Company Number: CN-ABBVIE-13P-035-1171614-00

PATIENT
  Age: 29 Year
  Sex: Male

DRUGS (2)
  1. DEPAKINE CHRONO [Suspect]
     Indication: EPILEPSY
     Dosage: TIME TO ONSET: FEW MONTHS
     Route: 048
     Dates: start: 201304, end: 201309
  2. DEPAKINE CHRONO [Suspect]
     Dosage: TIME TO ONSET: FEW MONTHS
     Route: 048
     Dates: start: 20131113

REACTIONS (2)
  - Suspected counterfeit product [Recovered/Resolved]
  - Epilepsy [Recovered/Resolved]
